FAERS Safety Report 25715443 (Version 1)
Quarter: 2025Q3

REPORT INFORMATION
  Report Type: Spontaneous
  Country: US (occurrence: None)
  Receive Date: 20250821
  Receipt Date: 20250821
  Transmission Date: 20251020
  Serious: Yes (Death)
  Sender: FDA-CTU
  Company Number: None

PATIENT
  Age: 75 Year
  Sex: Female

DRUGS (1)
  1. LUMAKRAS [Suspect]
     Active Substance: SOTORASIB
     Indication: Renal cancer
     Dosage: 600 MG DAILY ORAL ?
     Route: 048
     Dates: start: 20250211

REACTIONS (1)
  - Death [None]

NARRATIVE: CASE EVENT DATE: 20250801
